FAERS Safety Report 7595601-6 (Version None)
Quarter: 2011Q3

REPORT INFORMATION
  Report Type: 
  Country: None (occurrence: None)
  Receive Date: 20110707
  Receipt Date: 20110629
  Transmission Date: 20111222
  Serious: Yes (Hospitalization)
  Sender: FDA-Public Use
  Company Number: JP-GLAXOSMITHKLINE-B0719097A

PATIENT
  Sex: Female

DRUGS (14)
  1. AMOBAN [Suspect]
     Indication: PRODUCT USED FOR UNKNOWN INDICATION
     Route: 048
     Dates: start: 20090401
  2. REMERON [Concomitant]
     Route: 048
     Dates: start: 20110401, end: 20110519
  3. ALLEGRA [Concomitant]
     Dosage: 120MG PER DAY
     Route: 048
     Dates: start: 20110509
  4. LAMICTAL [Suspect]
     Indication: BIPOLAR DISORDER
     Dosage: 50MG PER DAY
     Route: 048
     Dates: start: 20110428, end: 20110509
  5. SEROQUEL [Concomitant]
     Dosage: 200MG PER DAY
     Route: 048
     Dates: start: 20090301
  6. AMOBAN [Concomitant]
     Indication: PAIN
     Route: 048
     Dates: start: 20090401
  7. LIMAS [Concomitant]
     Dosage: 400MG PER DAY
     Route: 048
     Dates: start: 20100501
  8. LOXONIN [Concomitant]
     Route: 048
  9. SEPAZON [Concomitant]
     Route: 048
     Dates: start: 20090401
  10. TEGRETOL [Concomitant]
     Dosage: 2000MG PER DAY
     Route: 048
     Dates: start: 20110327
  11. AMOXICILLIN [Suspect]
     Indication: INFECTION PROPHYLAXIS
     Dosage: 750MG PER DAY
     Route: 048
     Dates: start: 20110507, end: 20110509
  12. NITRAZEPAM [Concomitant]
     Route: 048
  13. MAGMITT [Concomitant]
     Route: 048
  14. LENDORMIN [Concomitant]
     Dosage: .25MG PER DAY
     Route: 048
     Dates: start: 20091001

REACTIONS (5)
  - LYMPHADENOPATHY [None]
  - LYMPH NODE PAIN [None]
  - PYREXIA [None]
  - RASH [None]
  - DYSGEUSIA [None]
